FAERS Safety Report 8458138-8 (Version None)
Quarter: 2012Q2

REPORT INFORMATION
  Report Type: 
  Country: None (occurrence: None)
  Receive Date: 20120622
  Receipt Date: 20120613
  Transmission Date: 20120825
  Serious: Yes (Other)
  Sender: FDA-Public Use
  Company Number: CA-JNJFOC-20120607093

PATIENT
  Sex: Female

DRUGS (2)
  1. REMICADE [Suspect]
     Indication: CROHN'S DISEASE
     Dosage: LAST DOSE
     Route: 042
     Dates: start: 20120401, end: 20120401
  2. REMICADE [Suspect]
     Route: 042
     Dates: start: 20110914

REACTIONS (1)
  - COLECTOMY TOTAL [None]
